FAERS Safety Report 5117192-1 (Version None)
Quarter: 2006Q3

REPORT INFORMATION
  Report Type: 
  Country: None (occurrence: None)
  Receive Date: 20060926
  Receipt Date: 20060913
  Transmission Date: 20061208
  Serious: Yes (Hospitalization)
  Sender: FDA-Public Use
  Company Number: 2006111208

PATIENT
  Age: 39 Year
  Sex: Female

DRUGS (1)
  1. CHANTIX [Suspect]
     Dates: start: 20060823, end: 20060903

REACTIONS (3)
  - HEART RATE IRREGULAR [None]
  - NIGHTMARE [None]
  - PULMONARY THROMBOSIS [None]
